FAERS Safety Report 20424219 (Version 1)
Quarter: 2022Q1

REPORT INFORMATION
  Report Type: Report from Study
  Country: US (occurrence: US)
  Receive Date: 20220203
  Receipt Date: 20220203
  Transmission Date: 20220423
  Serious: Yes (Other)
  Sender: FDA-Public Use
  Company Number: US-EXELIXIS-CABO-21041034

PATIENT
  Age: 77 Year
  Sex: Male
  Weight: 67.12 kg

DRUGS (3)
  1. CABOMETYX [Suspect]
     Active Substance: CABOZANTINIB S-MALATE
     Indication: Cholangiocarcinoma
     Dosage: 20 MG, QD
     Route: 048
     Dates: start: 20210513, end: 202106
  2. CABOMETYX [Suspect]
     Active Substance: CABOZANTINIB S-MALATE
     Dosage: 20 MG, QD
     Route: 048
     Dates: start: 202106
  3. COVID VACCINE [Concomitant]

REACTIONS (17)
  - Intracardiac thrombus [Unknown]
  - Balance disorder [Unknown]
  - Memory impairment [Unknown]
  - Insomnia [Unknown]
  - Dysphemia [Unknown]
  - Fall [Unknown]
  - Feeling abnormal [Unknown]
  - Bowel movement irregularity [Unknown]
  - Decreased appetite [Not Recovered/Not Resolved]
  - Asthenia [Not Recovered/Not Resolved]
  - Constipation [Unknown]
  - Diarrhoea [Not Recovered/Not Resolved]
  - Dizziness [Unknown]
  - Muscle spasms [Not Recovered/Not Resolved]
  - Fatigue [Not Recovered/Not Resolved]
  - Product dose omission issue [Unknown]
  - Off label use [Unknown]

NARRATIVE: CASE EVENT DATE: 20210501
